FAERS Safety Report 12398127 (Version 1)
Quarter: 2016Q2

REPORT INFORMATION
  Report Type: Report from Study
  Country: DE (occurrence: DE)
  Receive Date: 20160524
  Receipt Date: 20160524
  Transmission Date: 20160815
  Serious: Yes (Death)
  Sender: FDA-Public Use
  Company Number: PHHO2014DE013387

PATIENT
  Age: 79 Year
  Sex: Female
  Weight: 73.2 kg

DRUGS (19)
  1. DECORTIN H [Concomitant]
     Active Substance: PREDNISOLONE
     Indication: PRODUCT USED FOR UNKNOWN INDICATION
     Dosage: 5 MG, UNK
     Route: 065
  2. IBUPROFEN. [Concomitant]
     Active Substance: IBUPROFEN
     Indication: PAIN
     Dosage: 600 MG ON DEMAND
     Route: 065
  3. PREGABALIN. [Concomitant]
     Active Substance: PREGABALIN
     Indication: PAIN
     Dosage: 50 MG, QD
     Route: 048
  4. CLEXANE [Concomitant]
     Active Substance: ENOXAPARIN SODIUM
     Indication: PRODUCT USED FOR UNKNOWN INDICATION
     Dosage: 80 MG, QD
     Route: 058
  5. ZOLEDRONATE [Suspect]
     Active Substance: ZOLEDRONIC ACID
     Indication: PRODUCT USED FOR UNKNOWN INDICATION
     Dosage: 4 MG, ONCE EVERY 28 DAYS
     Route: 042
     Dates: end: 20140825
  6. SULTANOL [Concomitant]
     Active Substance: ALBUTEROL SULFATE
     Indication: DYSPNOEA
     Dosage: 0.1 MG, UNK
     Route: 055
  7. IPRATROPIUM BROMIDE. [Concomitant]
     Active Substance: IPRATROPIUM BROMIDE
     Indication: DYSPNOEA
     Dosage: 0.02 MG, UNK
     Route: 055
  8. EUTHYROX [Concomitant]
     Active Substance: LEVOTHYROXINE SODIUM
     Indication: HYPOTHYROIDISM
     Dosage: 0.05 MG, QD
     Route: 048
  9. BERODUAL [Concomitant]
     Active Substance: FENOTEROL HYDROBROMIDE\IPRATROPIUM BROMIDE
     Indication: PRODUCT USED FOR UNKNOWN INDICATION
     Route: 065
  10. BUDESONIDE. [Concomitant]
     Active Substance: BUDESONIDE
     Indication: DYSPNOEA
     Dosage: 0.2 MG, BID
     Route: 055
  11. ZOPICLON [Concomitant]
     Active Substance: ZOPICLONE
     Indication: INSOMNIA
     Dosage: 3.75 MG, UNK
     Route: 048
  12. METOPROLOL. [Concomitant]
     Active Substance: METOPROLOL
     Indication: HYPERTENSION
     Dosage: UNK UNK, BID
     Route: 048
  13. PREDNISOLON [Concomitant]
     Active Substance: PREDNISOLONE
     Indication: PNEUMONITIS
     Dosage: 5 MG, TID (2 DF IN MORNING AND 1 DF IN EVENING)
     Route: 048
  14. TORASEMIDE [Concomitant]
     Active Substance: TORSEMIDE
     Indication: PRODUCT USED FOR UNKNOWN INDICATION
     Dosage: 10 MG, QD
     Route: 048
  15. LETROZOLE. [Suspect]
     Active Substance: LETROZOLE
     Indication: BREAST CANCER METASTATIC
     Dosage: 2.5 MG, QD
     Route: 048
     Dates: start: 201305
  16. NO TREATMENT RECEIVED [Suspect]
     Active Substance: UNSPECIFIED INGREDIENT
     Indication: PRODUCT USED FOR UNKNOWN INDICATION
     Dosage: UNK
     Route: 065
  17. BELOC-ZOK COMP [Concomitant]
     Active Substance: HYDROCHLOROTHIAZIDE\METOPROLOL SUCCINATE
     Indication: PRODUCT USED FOR UNKNOWN INDICATION
     Dosage: 95 MG, UNK
     Route: 065
  18. ATROVENT [Concomitant]
     Active Substance: IPRATROPIUM BROMIDE
     Indication: PRODUCT USED FOR UNKNOWN INDICATION
     Route: 065
  19. MEROPENEM. [Concomitant]
     Active Substance: MEROPENEM
     Indication: INFECTION
     Dosage: 1 G, TID
     Route: 042

REACTIONS (5)
  - Tracheobronchitis [Fatal]
  - Respiratory failure [Fatal]
  - Pulmonary embolism [Fatal]
  - Breast cancer metastatic [Fatal]
  - Cardiac failure [Fatal]

NARRATIVE: CASE EVENT DATE: 20140910
